FAERS Safety Report 9902122 (Version 3)
Quarter: 2014Q2

REPORT INFORMATION
  Report Type: Spontaneous
  Country: FR (occurrence: FR)
  Receive Date: 20140217
  Receipt Date: 20140415
  Transmission Date: 20141212
  Serious: Yes (Life-Threatening, Hospitalization, Other)
  Sender: FDA-Public Use
  Company Number: FR-JNJFOC-20140101187

PATIENT
  Age: 80 Year
  Sex: Male
  Weight: 66 kg

DRUGS (4)
  1. ZYTIGA [Suspect]
     Indication: PROSTATE CANCER METASTATIC
     Route: 048
     Dates: start: 20130425, end: 20140102
  2. SOLUPRED [Concomitant]
     Route: 048
     Dates: start: 20130425, end: 20140102
  3. SOLUPRED [Concomitant]
     Dosage: FOR MONTH
     Route: 048
  4. XGEVA [Concomitant]
     Indication: METASTASES TO BONE
     Route: 058

REACTIONS (10)
  - Neutropenia [Recovered/Resolved]
  - Atrial fibrillation [Not Recovered/Not Resolved]
  - Cardiotoxicity [Unknown]
  - Mitral valve incompetence [Unknown]
  - Anaemia [Unknown]
  - Blood alkaline phosphatase increased [Unknown]
  - Oedema peripheral [Not Recovered/Not Resolved]
  - Treatment noncompliance [Unknown]
  - Hypertension [Unknown]
  - Weight increased [Not Recovered/Not Resolved]
